FAERS Safety Report 6613176-2 (Version None)
Quarter: 2010Q1

REPORT INFORMATION
  Report Type: 
  Country: None (occurrence: None)
  Receive Date: 20100304
  Receipt Date: 20100217
  Transmission Date: 20100710
  Serious: No
  Sender: FDA-Public Use
  Company Number: US-JNJFOC-20100208705

PATIENT
  Sex: Female
  Weight: 77.11 kg

DRUGS (10)
  1. DURAGESIC-100 [Suspect]
     Indication: NEURALGIA
     Route: 062
  2. DURAGESIC-100 [Suspect]
     Route: 062
  3. DURAGESIC-100 [Suspect]
     Route: 062
  4. INDERAL [Concomitant]
     Indication: ANXIETY
     Route: 048
  5. INDERAL [Concomitant]
     Indication: PAIN
     Route: 048
  6. EFFEXOR XR [Concomitant]
     Indication: ANXIETY
     Route: 048
  7. EFFEXOR XR [Concomitant]
     Indication: PAIN
     Route: 048
  8. ACTIQ [Concomitant]
     Indication: BREAKTHROUGH PAIN
     Route: 002
  9. SOMA [Concomitant]
     Indication: MUSCLE SPASMS
     Route: 048
  10. XANAX [Concomitant]
     Indication: ANXIETY
     Route: 048

REACTIONS (4)
  - DERMATITIS CONTACT [None]
  - DRUG ADMINISTERED AT INAPPROPRIATE SITE [None]
  - DRUG INEFFECTIVE [None]
  - WITHDRAWAL SYNDROME [None]
